FAERS Safety Report 5730429-0 (Version None)
Quarter: 2008Q2

REPORT INFORMATION
  Report Type: 
  Country: None (occurrence: None)
  Receive Date: 20080507
  Receipt Date: 20080428
  Transmission Date: 20081010
  Serious: Yes (Death, Other)
  Sender: FDA-Public Use
  Company Number: HQWYE747717MAY05

PATIENT
  Sex: Female

DRUGS (3)
  1. PREMPRO [Suspect]
     Indication: PROPHYLAXIS
     Dosage: UNKNOWN
     Route: 048
     Dates: start: 19950101, end: 20020101
  2. PREMPRO [Suspect]
     Indication: OSTEOPOROSIS
  3. PREMPRO [Suspect]
     Indication: CARDIAC DISORDER

REACTIONS (1)
  - BREAST CANCER METASTATIC [None]
